FAERS Safety Report 15547384 (Version 1)
Quarter: 2018Q4

REPORT INFORMATION
  Report Type: Report from Study
  Country: US (occurrence: US)
  Receive Date: 20181024
  Receipt Date: 20181024
  Transmission Date: 20190205
  Serious: Yes (Other)
  Sender: FDA-Public Use
  Company Number: US-ADAMAS PHARMA, LLC-2018ADA02582

PATIENT
  Age: 40 Year
  Sex: Male

DRUGS (7)
  1. FLUTICASONE. [Concomitant]
     Active Substance: FLUTICASONE
  2. COLACE [Concomitant]
     Active Substance: DOCUSATE SODIUM
  3. GOCOVRI [Suspect]
     Active Substance: AMANTADINE
     Indication: APRAXIA
     Dosage: 274 MG, 1X/DAY AT BEDTIME
     Route: 048
     Dates: start: 20180620
  4. CLARITIN [Concomitant]
     Active Substance: LORATADINE
  5. ENSURE HP [Concomitant]
  6. CLONAZEPAM. [Concomitant]
     Active Substance: CLONAZEPAM
  7. RISPERIDONE. [Concomitant]
     Active Substance: RISPERIDONE

REACTIONS (3)
  - Seizure like phenomena [Unknown]
  - Fall [Unknown]
  - Gait disturbance [Unknown]

NARRATIVE: CASE EVENT DATE: 2018
